FAERS Safety Report 6414912-0 (Version None)
Quarter: 2009Q4

REPORT INFORMATION
  Report Type: 
  Country: None (occurrence: None)
  Receive Date: 20091026
  Receipt Date: 20090527
  Transmission Date: 20100525
  Serious: Yes (Hospitalization)
  Sender: FDA-Public Use
  Company Number: US-ABBOTT-09P-163-0575336-00

PATIENT
  Sex: Female

DRUGS (2)
  1. LUPRON DEPOT [Suspect]
     Indication: ENDOMETRIOSIS
     Route: 050
     Dates: start: 20030101, end: 20030101
  2. LUPRON DEPOT [Suspect]
     Dates: start: 20050101, end: 20050101

REACTIONS (2)
  - PROCEDURAL PAIN [None]
  - UTERINE PAIN [None]
